FAERS Safety Report 4640279-4 (Version None)
Quarter: 2005Q2

REPORT INFORMATION
  Report Type: 
  Country: None (occurrence: None)
  Receive Date: 20050420
  Receipt Date: 20050331
  Transmission Date: 20051028
  Serious: Yes (Life-Threatening)
  Sender: FDA-Public Use
  Company Number: DE-GLAXOSMITHKLINE-D0046284A

PATIENT
  Age: 48 Year
  Sex: Male
  Weight: 60 kg

DRUGS (1)
  1. ALKERAN [Suspect]
     Indication: PLASMACYTOMA
     Route: 042

REACTIONS (5)
  - ENTERITIS [None]
  - GASTRITIS [None]
  - ILL-DEFINED DISORDER [None]
  - OESOPHAGITIS [None]
  - STOMATITIS [None]
